FAERS Safety Report 24390785 (Version 3)
Quarter: 2025Q1

REPORT INFORMATION
  Report Type: Spontaneous
  Country: JP (occurrence: JP)
  Receive Date: 20241003
  Receipt Date: 20250205
  Transmission Date: 20250409
  Serious: Yes (Hospitalization)
  Sender: ABBVIE
  Company Number: JP-ABBVIE-5947672

PATIENT
  Age: 81 Year
  Sex: Female

DRUGS (1)
  1. RINVOQ [Suspect]
     Active Substance: UPADACITINIB
     Indication: Rheumatoid arthritis
     Route: 048

REACTIONS (2)
  - Spinal compression fracture [Unknown]
  - Fall [Unknown]

NARRATIVE: CASE EVENT DATE: 20240703
